FAERS Safety Report 13360100 (Version 1)
Quarter: 2017Q1

REPORT INFORMATION
  Report Type: Spontaneous
  Country: FR (occurrence: FR)
  Receive Date: 20170322
  Receipt Date: 20170322
  Transmission Date: 20170429
  Serious: Yes (Life-Threatening)
  Sender: FDA-Public Use
  Company Number: FR-SA-2017SA046632

PATIENT
  Age: 69 Year
  Sex: Male

DRUGS (7)
  1. CO-APROVEL [Suspect]
     Active Substance: HYDROCHLOROTHIAZIDE\IRBESARTAN
     Indication: HYPERTENSION
     Route: 048
     Dates: end: 20170213
  2. CRESTOR [Concomitant]
     Active Substance: ROSUVASTATIN CALCIUM
     Route: 065
  3. UN-ALFA [Suspect]
     Active Substance: ALFACALCIDOL
     Indication: HYPOCALCAEMIA
     Dosage: ORAL CAPSULE
     Route: 048
     Dates: end: 20170213
  4. UN-ALFA [Suspect]
     Active Substance: ALFACALCIDOL
     Indication: HYPOCALCAEMIA
     Dosage: ORAL CAPSULE,08-MAR-2017
     Route: 048
  5. CELECTOL [Concomitant]
     Active Substance: CELIPROLOL HYDROCHLORIDE
     Route: 065
  6. LOXEN [Concomitant]
     Active Substance: NICARDIPINE HYDROCHLORIDE
     Route: 065
  7. LEVOTHYROX [Concomitant]
     Active Substance: LEVOTHYROXINE
     Route: 065

REACTIONS (2)
  - Acute kidney injury [Recovered/Resolved with Sequelae]
  - Hypercalcaemia [Recovered/Resolved with Sequelae]

NARRATIVE: CASE EVENT DATE: 20170213
